FAERS Safety Report 23063746 (Version 2)
Quarter: 2024Q1

REPORT INFORMATION
  Report Type: Spontaneous
  Country: US (occurrence: US)
  Receive Date: 20231013
  Receipt Date: 20240320
  Transmission Date: 20240410
  Serious: No
  Sender: FDA-Public Use
  Company Number: US-NOVEN PHARMACEUTICALS, INC.-2023-NOV-US000876

PATIENT
  Age: 23 Year
  Sex: Female

DRUGS (1)
  1. XELSTRYM [Suspect]
     Active Substance: DEXTROAMPHETAMINE
     Indication: Attention deficit hyperactivity disorder
     Dosage: 18 MG, UNKNOWN
     Route: 062

REACTIONS (5)
  - Application site erythema [Recovered/Resolved]
  - Application site pain [Recovered/Resolved]
  - Application site swelling [Recovered/Resolved]
  - Application site irritation [Recovered/Resolved]
  - Therapeutic product ineffective [Unknown]
